FAERS Safety Report 8072385-9 (Version None)
Quarter: 2012Q1

REPORT INFORMATION
  Report Type: 
  Country: None (occurrence: None)
  Receive Date: 20120126
  Receipt Date: 20120119
  Transmission Date: 20120608
  Serious: No
  Sender: FDA-Public Use
  Company Number: FR-US-EMD SERONO, INC.-7105986

PATIENT
  Age: 46 Year
  Sex: Female

DRUGS (1)
  1. REBIF [Suspect]
     Indication: PROGRESSIVE MULTIPLE SCLEROSIS
     Route: 058
     Dates: start: 20120103, end: 20120110

REACTIONS (4)
  - INSOMNIA [None]
  - NIGHT SWEATS [None]
  - DYSPNOEA [None]
  - INJECTION SITE PRURITUS [None]
